FAERS Safety Report 21459017 (Version 2)
Quarter: 2022Q4

REPORT INFORMATION
  Report Type: Report from Study
  Country: US (occurrence: US)
  Receive Date: 20221014
  Receipt Date: 20221025
  Transmission Date: 20230112
  Serious: Yes (Hospitalization, Other)
  Sender: FDA-Public Use
  Company Number: US-TAKEDA-2022TUS073591

PATIENT
  Age: 9 Year
  Sex: Female

DRUGS (17)
  1. TEDUGLUTIDE [Suspect]
     Active Substance: TEDUGLUTIDE
     Indication: Short-bowel syndrome
     Dosage: 0.950 MILLIGRAM, QD
     Route: 042
     Dates: start: 20200511, end: 20200821
  2. TEDUGLUTIDE [Suspect]
     Active Substance: TEDUGLUTIDE
     Indication: Short-bowel syndrome
     Dosage: 0.950 MILLIGRAM, QD
     Route: 042
     Dates: start: 20200511, end: 20200821
  3. TEDUGLUTIDE [Suspect]
     Active Substance: TEDUGLUTIDE
     Indication: Short-bowel syndrome
     Dosage: 0.950 MILLIGRAM, QD
     Route: 042
     Dates: start: 20200511, end: 20200821
  4. TEDUGLUTIDE [Suspect]
     Active Substance: TEDUGLUTIDE
     Indication: Short-bowel syndrome
     Dosage: 0.950 MILLIGRAM, QD
     Route: 042
     Dates: start: 20200511, end: 20200821
  5. TEDUGLUTIDE [Suspect]
     Active Substance: TEDUGLUTIDE
     Dosage: 1.045 MILLIGRAM, QD
     Route: 042
     Dates: start: 20200821, end: 20211210
  6. TEDUGLUTIDE [Suspect]
     Active Substance: TEDUGLUTIDE
     Dosage: 1.045 MILLIGRAM, QD
     Route: 042
     Dates: start: 20200821, end: 20211210
  7. TEDUGLUTIDE [Suspect]
     Active Substance: TEDUGLUTIDE
     Dosage: 1.045 MILLIGRAM, QD
     Route: 042
     Dates: start: 20200821, end: 20211210
  8. TEDUGLUTIDE [Suspect]
     Active Substance: TEDUGLUTIDE
     Dosage: 1.045 MILLIGRAM, QD
     Route: 042
     Dates: start: 20200821, end: 20211210
  9. TEDUGLUTIDE [Suspect]
     Active Substance: TEDUGLUTIDE
     Dosage: 1.500 MILLIGRAM, QD
     Route: 042
     Dates: start: 20211210
  10. TEDUGLUTIDE [Suspect]
     Active Substance: TEDUGLUTIDE
     Dosage: 1.500 MILLIGRAM, QD
     Route: 042
     Dates: start: 20211210
  11. TEDUGLUTIDE [Suspect]
     Active Substance: TEDUGLUTIDE
     Dosage: 1.500 MILLIGRAM, QD
     Route: 042
     Dates: start: 20211210
  12. TEDUGLUTIDE [Suspect]
     Active Substance: TEDUGLUTIDE
     Dosage: 1.500 MILLIGRAM, QD
     Route: 042
     Dates: start: 20211210
  13. FLAGYL [Concomitant]
     Active Substance: METRONIDAZOLE\METRONIDAZOLE HYDROCHLORIDE
     Indication: Clostridium difficile colitis
     Dosage: 2.10 MILLILITER, QD
     Route: 042
     Dates: start: 20210506, end: 20210513
  14. VANCOMYCIN [Concomitant]
     Active Substance: VANCOMYCIN
     Indication: Vascular device infection
     Dosage: 370 MILLIGRAM, TID
     Route: 042
     Dates: start: 20200309, end: 20200323
  15. VANCOMYCIN [Concomitant]
     Active Substance: VANCOMYCIN
     Dosage: 500 MILLIGRAM, TID
     Route: 042
     Dates: start: 20220303, end: 20220317
  16. METRONIDAZOLE [Concomitant]
     Active Substance: METRONIDAZOLE
     Indication: Overgrowth bacterial
     Dosage: 125 MILLIGRAM, BID
     Route: 050
     Dates: start: 20151120
  17. Sulfatrim pediatric [Concomitant]
     Indication: Overgrowth bacterial
     Dosage: 65 MILLIGRAM, BID
     Route: 050
     Dates: start: 20151120

REACTIONS (1)
  - Device related sepsis [Recovered/Resolved]

NARRATIVE: CASE EVENT DATE: 20220303
